FAERS Safety Report 5800917-7 (Version None)
Quarter: 2008Q3

REPORT INFORMATION
  Report Type: 
  Country: None (occurrence: None)
  Receive Date: 20080701
  Receipt Date: 20080621
  Transmission Date: 20090109
  Serious: No
  Sender: FDA-Public Use
  Company Number: 2008SP008834

PATIENT
  Age: 60 Year
  Sex: Female
  Weight: 66 kg

DRUGS (3)
  1. REBETOL [Suspect]
     Indication: HEPATITIS C
     Dosage: 800 MG;BID;PO
     Route: 048
     Dates: start: 20020816, end: 20030204
  2. INTRON A [Suspect]
     Indication: HEPATITIS C
     Dosage: 10 MIU;IM; 10 MIU;TIW;IM
     Route: 030
     Dates: start: 20020816, end: 20021011
  3. INTRON A [Suspect]
     Indication: HEPATITIS C
     Dosage: 10 MIU;IM; 10 MIU;TIW;IM
     Route: 030
     Dates: start: 20021012, end: 20030401

REACTIONS (2)
  - AUTOIMMUNE HEPATITIS [None]
  - BILIARY CIRRHOSIS PRIMARY [None]
